FAERS Safety Report 4424455-1 (Version None)
Quarter: 2004Q3

REPORT INFORMATION
  Report Type: 
  Country: None (occurrence: None)
  Receive Date: 20040719
  Receipt Date: 20031226
  Transmission Date: 20050211
  Serious: Yes (Hospitalization)
  Sender: FDA-Public Use
  Company Number: 189389

PATIENT
  Age: 51 Year
  Sex: Female
  Weight: 74.8435 kg

DRUGS (2)
  1. AVONEX [Suspect]
     Indication: MULTIPLE SCLEROSIS
     Dates: start: 19980301
  2. AVONEX [Suspect]
     Indication: MULTIPLE SCLEROSIS
     Dates: start: 20031001

REACTIONS (3)
  - DEPRESSION [None]
  - MULTIPLE SCLEROSIS [None]
  - MULTIPLE SCLEROSIS RELAPSE [None]
